FAERS Safety Report 10068997 (Version 2)
Quarter: 2014Q2

REPORT INFORMATION
  Report Type: Spontaneous
  Country: PT (occurrence: PT)
  Receive Date: 20140409
  Receipt Date: 20140523
  Transmission Date: 20141212
  Serious: Yes (Life-Threatening)
  Sender: FDA-Public Use
  Company Number: PT-TEVA-471884ISR

PATIENT
  Age: 78 Year
  Sex: Male
  Weight: 70 kg

DRUGS (11)
  1. OXALIPLAT TEVA [Suspect]
     Indication: PANCREATIC CARCINOMA
     Route: 040
     Dates: start: 20130311, end: 20140311
  2. IRINOTECANO ACTAVIS [Suspect]
     Indication: PANCREATIC NEOPLASM
     Dosage: 10 MG/M2 DAILY;
     Route: 040
     Dates: start: 20130311, end: 20140311
  3. CALCIUM FOLINATE TEVA [Concomitant]
     Indication: PANCREATIC CARCINOMA
     Route: 042
     Dates: start: 20140310
  4. FLUOROURACILO ACCORD [Concomitant]
     Indication: PANCREATIC CARCINOMA
     Route: 042
     Dates: start: 20140310
  5. DEXAMETASONA [Concomitant]
     Indication: PROPHYLAXIS OF NAUSEA AND VOMITING
     Route: 048
     Dates: start: 20140310
  6. GRANISSETROM ACTAVIS [Concomitant]
     Indication: PROPHYLAXIS OF NAUSEA AND VOMITING
     Route: 048
     Dates: start: 20140310
  7. TRIMETAZIDINA [Concomitant]
     Indication: PRODUCT USED FOR UNKNOWN INDICATION
     Dosage: 1 DOSAGE FORMS DAILY;
     Route: 048
  8. LISINOPRIL [Concomitant]
     Indication: HYPERTENSION
     Dosage: 1 DOSAGE FORMS DAILY;
     Route: 048
  9. OMEPRAZOL [Concomitant]
     Indication: PROPHYLAXIS
     Dosage: 1 DOSAGE FORMS DAILY;
     Route: 048
  10. ALPRAZOLAM [Concomitant]
     Indication: PRODUCT USED FOR UNKNOWN INDICATION
     Dosage: 1 DOSAGE FORMS DAILY;
     Route: 048
  11. GINKGO BILOBA [Concomitant]
     Indication: PRODUCT USED FOR UNKNOWN INDICATION
     Dosage: 1 DOSAGE FORMS DAILY;
     Route: 048

REACTIONS (6)
  - Oropharyngeal discomfort [Recovered/Resolved]
  - Erythema [Recovered/Resolved]
  - Speech disorder [Recovered/Resolved]
  - Off label use [Recovered/Resolved]
  - Hypoaesthesia oral [Recovered/Resolved]
  - Blood pressure increased [Recovered/Resolved]
